FAERS Safety Report 6522516-4 (Version None)
Quarter: 2009Q4

REPORT INFORMATION
  Report Type: 
  Country: None (occurrence: None)
  Receive Date: 20091229
  Receipt Date: 20091229
  Transmission Date: 20100525
  Serious: Yes (Other)
  Sender: FDA-Public Use
  Company Number: None

PATIENT
  Age: 58 Year
  Sex: Female
  Weight: 115.6672 kg

DRUGS (1)
  1. LEVAQUIN [Suspect]
     Indication: SINUSITIS
     Dosage: 500 1 DAILY PO
     Route: 048
     Dates: start: 20091123, end: 20091203

REACTIONS (6)
  - ARTHRALGIA [None]
  - BURNING SENSATION [None]
  - INFLAMMATION [None]
  - MOVEMENT DISORDER [None]
  - MUSCULOSKELETAL PAIN [None]
  - TENDERNESS [None]
